FAERS Safety Report 5414500-9 (Version None)
Quarter: 2007Q3

REPORT INFORMATION
  Report Type: 
  Country: None (occurrence: None)
  Receive Date: 20070713
  Receipt Date: 20070508
  Transmission Date: 20080115
  Serious: Yes (Hospitalization)
  Sender: FDA-Public Use
  Company Number: US-JNJFOC-20070101926

PATIENT
  Age: 18 Year
  Sex: Female
  Weight: 49.4421 kg

DRUGS (1)
  1. ORTHO EVRA [Suspect]
     Indication: CONTRACEPTION
     Dosage: 1 DOSE(S), 1 IN 3 WEEK, SUBCUTANEOUS
     Route: 058
     Dates: start: 20030101, end: 20050104

REACTIONS (1)
  - CEREBROVASCULAR ACCIDENT [None]
